FAERS Safety Report 5555510-0 (Version None)
Quarter: 2007Q4

REPORT INFORMATION
  Report Type: 
  Country: None (occurrence: None)
  Receive Date: 20071130
  Receipt Date: 20070802
  Transmission Date: 20080405
  Serious: No
  Sender: FDA-Public Use
  Company Number: US200609000928

PATIENT
  Age: 70 Year
  Sex: Male
  Weight: 111.1 kg

DRUGS (4)
  1. BYETTA [Suspect]
     Indication: TYPE 2 DIABETES MELLITUS
     Dosage: 5 UG, 2/D, SUBCUTANEOUS
     Route: 058
     Dates: start: 20060815
  2. PRANDIN (DEFLAZACORT) [Concomitant]
  3. METFORMIN HCL [Concomitant]
  4. ACTOS ^TAKEDA^ (PIOGLITAZONE HYDROCHLORIDE) [Concomitant]

REACTIONS (5)
  - ASTHENIA [None]
  - BLOOD GLUCOSE DECREASED [None]
  - CHEST PAIN [None]
  - DECREASED APPETITE [None]
  - WEIGHT DECREASED [None]
